FAERS Safety Report 22692380 (Version 4)
Quarter: 2023Q4

REPORT INFORMATION
  Report Type: Spontaneous
  Country: US (occurrence: US)
  Receive Date: 20230711
  Receipt Date: 20231006
  Transmission Date: 20240110
  Serious: Yes (Other)
  Sender: FDA-Public Use
  Company Number: US-BRISTOL-MYERS SQUIBB COMPANY-2023-095760

PATIENT
  Age: 72 Year
  Sex: Male

DRUGS (8)
  1. LENALIDOMIDE [Suspect]
     Active Substance: LENALIDOMIDE
     Indication: Plasma cell myeloma
     Dosage: FREQUENCY- TAKE 1 CAPSULE BY MOUTH EVERY DAY FOR 21 DAYS
     Route: 048
     Dates: start: 20230705
  2. LENALIDOMIDE [Suspect]
     Active Substance: LENALIDOMIDE
     Dosage: FREQUENCY- TAKE 1 CAPSULE BY MOUTH EVERY DAY
     Route: 048
  3. DEXAMETHASONE [Suspect]
     Active Substance: DEXAMETHASONE
     Indication: Product used for unknown indication
  4. AUGMENTIN [Suspect]
     Active Substance: AMOXICILLIN\CLAVULANATE POTASSIUM
     Indication: Otitis media
  5. OMNICEF [Suspect]
     Active Substance: CEFDINIR
     Indication: Otitis media
  6. VELCADE [Concomitant]
     Active Substance: BORTEZOMIB
     Indication: Product used for unknown indication
     Route: 058
  7. XGEVA [Concomitant]
     Active Substance: DENOSUMAB
     Indication: Product used for unknown indication
  8. ASPIRIN [Concomitant]
     Active Substance: ASPIRIN
     Indication: Product used for unknown indication

REACTIONS (15)
  - Bone disorder [Unknown]
  - Cancer pain [Unknown]
  - Diverticulitis [Unknown]
  - Neutropenia [Recovered/Resolved]
  - Fatigue [Unknown]
  - Cancer fatigue [Unknown]
  - Iliotibial band syndrome [Unknown]
  - Gait disturbance [Recovering/Resolving]
  - Increased appetite [Unknown]
  - Constipation [Unknown]
  - Barotitis media [Unknown]
  - Diarrhoea [Unknown]
  - Arthralgia [Unknown]
  - Poor quality sleep [Unknown]
  - Tachyphrenia [Unknown]
